FAERS Safety Report 11112876 (Version 2)
Quarter: 2015Q3

REPORT INFORMATION
  Report Type: Spontaneous
  Country: US (occurrence: US)
  Receive Date: 20150514
  Receipt Date: 20150811
  Transmission Date: 20151125
  Serious: Yes (Hospitalization)
  Sender: FDA-Public Use
  Company Number: US-009507513-1505USA003029

PATIENT
  Sex: Male

DRUGS (1)
  1. PROSCAR [Suspect]
     Active Substance: FINASTERIDE
     Indication: ANDROGENETIC ALOPECIA
     Dosage: 1.5 MG, UNK
     Route: 048
     Dates: start: 2000, end: 2009

REACTIONS (5)
  - Drug administration error [Unknown]
  - Incorrect dose administered [Unknown]
  - Erectile dysfunction [Not Recovered/Not Resolved]
  - Chest pain [Unknown]
  - Sexual dysfunction [Not Recovered/Not Resolved]

NARRATIVE: CASE EVENT DATE: 2000
